FAERS Safety Report 23656727 (Version 1)
Quarter: 2024Q1

REPORT INFORMATION
  Report Type: Spontaneous
  Country: US (occurrence: US)
  Receive Date: 20240321
  Receipt Date: 20240321
  Transmission Date: 20240410
  Serious: No
  Sender: FDA-Public Use
  Company Number: US-BRISTOL-MYERS SQUIBB COMPANY-2024-044820

PATIENT
  Age: 61 Year
  Sex: Female

DRUGS (2)
  1. OPDIVO [Suspect]
     Active Substance: NIVOLUMAB
     Indication: Endometrial cancer
     Dosage: STRENGTH: 6X100MG VIALS
  2. YERVOY [Suspect]
     Active Substance: IPILIMUMAB
     Indication: Endometrial cancer
     Dosage: 4X50MG VIALS

REACTIONS (1)
  - Off label use [Unknown]
